FAERS Safety Report 8430625-8 (Version None)
Quarter: 2012Q2

REPORT INFORMATION
  Report Type: 
  Country: None (occurrence: None)
  Receive Date: 20120606
  Receipt Date: 20120606
  Transmission Date: 20120825
  Serious: No
  Sender: FDA-Public Use
  Company Number: None

PATIENT
  Age: 30 Year
  Sex: Female
  Weight: 95.2554 kg

DRUGS (1)
  1. ZITHROMAX [Suspect]
     Dosage: 5 DAY ROUTINE TREATMENT

REACTIONS (2)
  - HYPERSENSITIVITY [None]
  - WHEEZING [None]
